FAERS Safety Report 7823676-5 (Version None)
Quarter: 2011Q4

REPORT INFORMATION
  Report Type: 
  Country: None (occurrence: None)
  Receive Date: 20111019
  Receipt Date: 20111013
  Transmission Date: 20120403
  Serious: Yes (Death, Hospitalization)
  Sender: FDA-Public Use
  Company Number: NL-GENZYME-CLOF-1001858

PATIENT
  Sex: Male
  Weight: 99 kg

DRUGS (3)
  1. IDARUBICIN HCL [Suspect]
     Indication: ACUTE MYELOID LEUKAEMIA
     Dosage: 26 MG, UNK
     Route: 065
     Dates: start: 20110921, end: 20110923
  2. CYTARABINE [Suspect]
     Indication: ACUTE MYELOID LEUKAEMIA
     Dosage: 440 MG, UNK
     Route: 065
     Dates: start: 20110921, end: 20110927
  3. EVOLTRA [Suspect]
     Indication: ACUTE MYELOID LEUKAEMIA
     Dosage: 22 MG, UNK
     Route: 065
     Dates: start: 20110921, end: 20110925

REACTIONS (3)
  - SEPSIS [None]
  - TOXICITY TO VARIOUS AGENTS [None]
  - MULTI-ORGAN FAILURE [None]
